FAERS Safety Report 18821672 (Version 4)
Quarter: 2021Q1

REPORT INFORMATION
  Report Type: Spontaneous
  Country: US (occurrence: US)
  Receive Date: 20210202
  Receipt Date: 20210325
  Transmission Date: 20210419
  Serious: No
  Sender: FDA-Public Use
  Company Number: US-VERTEX PHARMACEUTICALS-2021-001466

PATIENT
  Age: 37 Year
  Sex: Female

DRUGS (11)
  1. ZMAX [Concomitant]
     Active Substance: AZITHROMYCIN DIHYDRATE
  2. PERTZYE [Concomitant]
     Active Substance: PANCRELIPASE AMYLASE\PANCRELIPASE LIPASE\PANCRELIPASE PROTEASE
  3. LAMOTRIGINE. [Concomitant]
     Active Substance: LAMOTRIGINE
  4. SODIUM CHLORIDE. [Concomitant]
     Active Substance: SODIUM CHLORIDE
  5. TOBI [Concomitant]
     Active Substance: TOBRAMYCIN
  6. SERTRALINE [Concomitant]
     Active Substance: SERTRALINE HYDROCHLORIDE
     Indication: DEPRESSION
     Dosage: 150 MILLIGRAM, DAILY
     Dates: start: 2013
  7. ALBUTEROL [SALBUTAMOL] [Concomitant]
     Active Substance: ALBUTEROL
  8. VITAMIN D [ERGOCALCIFEROL] [Concomitant]
     Active Substance: ERGOCALCIFEROL
  9. INSULIN [Concomitant]
     Active Substance: INSULIN NOS
  10. PULMOZYME [Concomitant]
     Active Substance: DORNASE ALFA
  11. TRIKAFTA [Suspect]
     Active Substance: ELEXACAFTOR\IVACAFTOR\TEZACAFTOR
     Indication: CYSTIC FIBROSIS
     Dosage: 2 TABS(100MG ELEXA/ 50MG TEZA/ 75MG IVA) AM; 1 TAB(150 MG IVA) PM
     Route: 048
     Dates: start: 202004

REACTIONS (3)
  - Arthralgia [Unknown]
  - Hyperhidrosis [Unknown]
  - Skin odour abnormal [Unknown]
